FAERS Safety Report 24927088 (Version 2)
Quarter: 2025Q1

REPORT INFORMATION
  Report Type: Spontaneous
  Country: US (occurrence: US)
  Receive Date: 20250205
  Receipt Date: 20250323
  Transmission Date: 20250409
  Serious: No
  Sender: NOVARTIS
  Company Number: US-002147023-NVSC2025US019048

PATIENT
  Age: 79 Year
  Sex: Male

DRUGS (1)
  1. ILARIS [Suspect]
     Active Substance: CANAKINUMAB
     Indication: Product used for unknown indication
     Route: 065
     Dates: start: 20250114

REACTIONS (2)
  - Illness [Unknown]
  - Influenza [Unknown]

NARRATIVE: CASE EVENT DATE: 20250123
